FAERS Safety Report 25474169 (Version 3)
Quarter: 2025Q3

REPORT INFORMATION
  Report Type: Spontaneous
  Country: EU (occurrence: EU)
  Receive Date: 20250624
  Receipt Date: 20250801
  Transmission Date: 20251021
  Serious: Yes (Other)
  Sender: AMGEN
  Company Number: EU-AMGEN-AUTSP2025120112

PATIENT
  Age: 45 Year
  Sex: Female

DRUGS (2)
  1. XGEVA [Suspect]
     Active Substance: DENOSUMAB
     Indication: Breast cancer metastatic
     Dosage: UNK UNK, Q4WK
     Route: 065
     Dates: start: 2020
  2. XGEVA [Suspect]
     Active Substance: DENOSUMAB
     Dosage: UNK UNK, Q6WK
     Route: 065
     Dates: start: 2022

REACTIONS (2)
  - Femur fracture [Unknown]
  - Off label use [Unknown]
